FAERS Safety Report 21331833 (Version 1)
Quarter: 2022Q3

REPORT INFORMATION
  Report Type: Spontaneous
  Country: FR (occurrence: FR)
  Receive Date: 20220914
  Receipt Date: 20220914
  Transmission Date: 20221027
  Serious: Yes (Hospitalization)
  Sender: FDA-Public Use
  Company Number: None

PATIENT
  Age: 79 Year
  Sex: Male
  Weight: 70 kg

DRUGS (12)
  1. AMLODIPINE [Suspect]
     Active Substance: AMLODIPINE BESYLATE
     Indication: Hypertension
     Dosage: UNIT DOSE :  5 MG, FREQUENCY TIME : 1 DAY , DURATION  :  5 DAYS
     Route: 065
     Dates: start: 20220805, end: 20220810
  2. AUGMENTIN [Suspect]
     Active Substance: AMOXICILLIN\CLAVULANATE POTASSIUM
     Indication: Pneumonia
     Dosage: DURATION : 7 DAYS
     Route: 065
     Dates: start: 20220728, end: 20220804
  3. LOVENOX [Concomitant]
     Active Substance: ENOXAPARIN SODIUM
     Indication: Thrombosis prophylaxis
     Dosage: STRENGTH : 4000 IU ANTI-XA/0.4 ML, UNIT DOSE : 1 DOSAGE FORM ,  FREQUENCY TIME : 1 DAY ,   DURATION
     Dates: start: 20220728, end: 20220816
  4. PRAVASTATIN SODIUM [Concomitant]
     Active Substance: PRAVASTATIN SODIUM
     Indication: Cardiovascular event prophylaxis
     Dosage: UNIT DOSE :  20 MG, FREQUENCY TIME : 1 DAY, DURATION : 11 DAYS
     Dates: start: 20220805, end: 20220816
  5. ALBUTEROL [Concomitant]
     Active Substance: ALBUTEROL
     Indication: Asthma
     Dosage: UNIT DOSE :  4 MG, FREQUENCY TIME : 1 DAY ,   DURATION : 19 DAYS
     Dates: start: 20220728, end: 20220816
  6. DOLIPRANE [Concomitant]
     Active Substance: ACETAMINOPHEN
     Indication: Pain
     Dosage: UNIT DOSE :  3 GRAM, FREQUENCY TIME : 1 DAY , STRENGTH  : 500 MG
     Dates: start: 20220728
  7. FUNGIZONE [Concomitant]
     Active Substance: AMPHOTERICIN B
     Indication: Oral infection
     Dosage: STRENGTH : 10 PER CENT , UNIT DOSE :  3 DOSAGE FORM, FREQUENCY TIME : 1 DAY ,  DURATION : 15 DAYS
     Route: 048
     Dates: start: 20220806, end: 20220821
  8. ADALIMUMAB [Concomitant]
     Active Substance: ADALIMUMAB
     Indication: Colitis
     Dosage: UNIT DOSE : 1 DOSAGE FORM ,  FREQUENCY TIME : 15 DAYS, DURATION : 15 DAYS
     Dates: start: 20220801, end: 20220816
  9. IPRATROPIUM BROMIDE [Concomitant]
     Active Substance: IPRATROPIUM BROMIDE
     Indication: Asthma
     Dosage: UNIT DOSE :  2 MG, FREQUENCY TIME : 1 DAY ,   DURATION : 19 DAYS
     Dates: start: 20220728, end: 20220816
  10. SPIRIVA [Concomitant]
     Active Substance: TIOTROPIUM BROMIDE MONOHYDRATE
     Indication: Asthma
     Dosage: POWDER FOR INHALATION IN CAPSULE , UNIT DOSE : 1 DOSAGE FORM ,  FREQUENCY TIME : 1 DAY,   DURATION :
     Dates: start: 20220728, end: 20220816
  11. DILATRANE [Concomitant]
     Indication: Chronic obstructive pulmonary disease
     Dosage: UNIT DOSE :  600MG, FREQUENCY TIME : 1 DAY , DURATION : 14 DAYS
     Dates: start: 20220802, end: 20220816
  12. SERETIDE [Concomitant]
     Active Substance: FLUTICASONE PROPIONATE\SALMETEROL XINAFOATE
     Indication: Chronic obstructive pulmonary disease
     Dosage: STRENGTH : 250/50 MICROGRAMS/DOSE , IN A SINGLE-DOSE CONTAINER , DURATION : 19 DAYS, UNIT DOSE : 8 D
     Dates: start: 20220728, end: 20220816

REACTIONS (2)
  - Diarrhoea [Recovered/Resolved]
  - Hypokalaemia [Recovered/Resolved]

NARRATIVE: CASE EVENT DATE: 20220808
